FAERS Safety Report 23969934 (Version 1)
Quarter: 2024Q2

REPORT INFORMATION
  Report Type: Spontaneous
  Country: US (occurrence: US)
  Receive Date: 20240613
  Receipt Date: 20240613
  Transmission Date: 20240715
  Serious: No
  Sender: FDA-Public Use
  Company Number: US-Orient Pharma-000160

PATIENT
  Age: 80 Year
  Sex: Female

DRUGS (1)
  1. VANCOMYCIN HYDROCHLORIDE [Suspect]
     Active Substance: VANCOMYCIN HYDROCHLORIDE
     Indication: Urinary tract infection
     Dosage: STRENGTH: 250 MG; 2 CAPSULES EVERY 6 HOURS
     Route: 048
     Dates: start: 20230822

REACTIONS (3)
  - Pruritus [Recovered/Resolved]
  - Dysuria [Recovered/Resolved]
  - Off label use [Unknown]

NARRATIVE: CASE EVENT DATE: 20230822
